FAERS Safety Report 11023283 (Version 1)
Quarter: 2015Q2

REPORT INFORMATION
  Report Type: Spontaneous
  Country: US (occurrence: US)
  Receive Date: 20150413
  Receipt Date: 20150413
  Transmission Date: 20150821
  Serious: Yes (Other)
  Sender: FDA-Public Use
  Company Number: US-CELGENE-USA-2015032377

PATIENT
  Age: 67 Year
  Sex: Female

DRUGS (1)
  1. POMALYST [Suspect]
     Active Substance: POMALIDOMIDE
     Indication: PLASMA CELL MYELOMA
     Dosage: 2 MILLIGRAM
     Route: 048
     Dates: start: 20150316

REACTIONS (4)
  - Dizziness [Unknown]
  - White blood cell count decreased [Unknown]
  - Tremor [Unknown]
  - Drug intolerance [Unknown]

NARRATIVE: CASE EVENT DATE: 201503
